FAERS Safety Report 5972538-7 (Version None)
Quarter: 2008Q4

REPORT INFORMATION
  Report Type: 
  Country: None (occurrence: None)
  Receive Date: 20081201
  Receipt Date: 20081118
  Transmission Date: 20090506
  Serious: Yes (Hospitalization)
  Sender: FDA-Public Use
  Company Number: B0546834A

PATIENT
  Age: 63 Year
  Sex: Male

DRUGS (7)
  1. AUGMENTIN '125' [Suspect]
     Route: 048
     Dates: start: 20080109, end: 20080109
  2. OFLOXACIN [Concomitant]
     Dates: start: 20080110, end: 20080110
  3. SERETIDE [Concomitant]
     Indication: DRUG USE FOR UNKNOWN INDICATION
  4. VENTOLIN [Concomitant]
     Indication: DRUG USE FOR UNKNOWN INDICATION
  5. PLAVIX [Concomitant]
  6. ZOCOR [Concomitant]
  7. RULID [Concomitant]
     Dates: start: 20071227

REACTIONS (8)
  - ANGIOEDEMA [None]
  - CHILLS [None]
  - DERMATITIS EXFOLIATIVE [None]
  - ERYTHEMA [None]
  - MALAISE [None]
  - RASH [None]
  - SKIN EXFOLIATION [None]
  - TYPE IV HYPERSENSITIVITY REACTION [None]
